FAERS Safety Report 18522485 (Version 1)
Quarter: 2020Q4

REPORT INFORMATION
  Report Type: Spontaneous
  Country: US (occurrence: US)
  Receive Date: 20201119
  Receipt Date: 20201119
  Transmission Date: 20210114
  Serious: Yes (Death)
  Sender: FDA-Public Use
  Company Number: US-AMERICAN REGENT INC-2020002405

PATIENT
  Age: 54 Year
  Sex: Male

DRUGS (21)
  1. NOREPINEPHRINE. [Suspect]
     Active Substance: NOREPINEPHRINE
     Indication: PRODUCT USED FOR UNKNOWN INDICATION
     Dosage: UNK
     Route: 042
  2. AMIODARONE [Concomitant]
     Active Substance: AMIODARONE
     Indication: VENTRICULAR FIBRILLATION
     Dosage: UNK
     Route: 042
  3. POTASSIUM CHLORIDE. [Concomitant]
     Active Substance: POTASSIUM CHLORIDE
     Dosage: 60 MILLIMOLE, SINGLE
     Route: 042
  4. SODIUM BICARBONATE. [Concomitant]
     Active Substance: SODIUM BICARBONATE
     Indication: EVIDENCE BASED TREATMENT
     Dosage: UNK
     Route: 042
  5. POTASSIUM CHLORIDE. [Concomitant]
     Active Substance: POTASSIUM CHLORIDE
     Dosage: 40 MILLIMOLE, SINGLE
     Route: 042
  6. CALCIUM CHLORIDE INJECTION USP 10% (0517-6710-01) [Suspect]
     Active Substance: CALCIUM CHLORIDE
     Indication: EVIDENCE BASED TREATMENT
     Dosage: UNK
     Route: 042
  7. NOREPINEPHRINE. [Suspect]
     Active Substance: NOREPINEPHRINE
     Dosage: UNK, WEANED
     Route: 042
  8. DEXTROSE. [Suspect]
     Active Substance: DEXTROSE
     Indication: EVIDENCE BASED TREATMENT
     Dosage: UNK
     Route: 042
  9. EPINEPHRINE INJECTION, USP (0517-1071-01) [Suspect]
     Active Substance: EPINEPHRINE
     Dosage: UNK, CONTINUOUS INFUSION
  10. NALOXONE [Concomitant]
     Active Substance: NALOXONE
     Indication: PRODUCT USED FOR UNKNOWN INDICATION
     Dosage: UNK
     Route: 042
  11. EPINEPHRINE INJECTION, USP (0517-1071-01) [Suspect]
     Active Substance: EPINEPHRINE
     Indication: VENTRICULAR FIBRILLATION
     Dosage: UNK
  12. AMIODARONE [Concomitant]
     Active Substance: AMIODARONE
     Dosage: UNK
     Route: 042
  13. POTASSIUM CHLORIDE. [Concomitant]
     Active Substance: POTASSIUM CHLORIDE
     Dosage: 40 MILLIMOLE, SINGLE
     Route: 042
  14. EPINEPHRINE INJECTION, USP (0517-1071-01) [Suspect]
     Active Substance: EPINEPHRINE
     Dosage: UNK, WEANED
  15. CLEVIDIPINE [Suspect]
     Active Substance: CLEVIDIPINE
     Indication: BLOOD PRESSURE INCREASED
     Dosage: UNK
     Route: 042
  16. ROCURONIUM [Concomitant]
     Active Substance: ROCURONIUM BROMIDE
     Indication: PRODUCT USED FOR UNKNOWN INDICATION
     Dosage: UNK
     Route: 042
  17. VASOPRESSIN INJECTION, USP [Suspect]
     Active Substance: VASOPRESSIN
     Indication: PRODUCT USED FOR UNKNOWN INDICATION
     Dosage: UNK
     Route: 042
  18. INSULIN [Suspect]
     Active Substance: INSULIN NOS
     Indication: EVIDENCE BASED TREATMENT
     Dosage: UNK
     Route: 042
  19. KETAMINE [Concomitant]
     Active Substance: KETAMINE
     Indication: PRODUCT USED FOR UNKNOWN INDICATION
     Dosage: UNK
     Route: 042
  20. ASPIRIN. [Concomitant]
     Active Substance: ASPIRIN
     Indication: PRODUCT USED FOR UNKNOWN INDICATION
     Dosage: UNK
     Route: 054
  21. POTASSIUM CHLORIDE. [Concomitant]
     Active Substance: POTASSIUM CHLORIDE
     Indication: HYPOKALAEMIA
     Dosage: 40 MILLIMOLE, SINGLE
     Route: 042

REACTIONS (2)
  - Acquired apparent mineralocorticoid excess [Fatal]
  - Condition aggravated [Fatal]
